FAERS Safety Report 11073082 (Version 1)
Quarter: 2015Q2

REPORT INFORMATION
  Report Type: Spontaneous
  Country: US (occurrence: US)
  Receive Date: 20150428
  Receipt Date: 20150428
  Transmission Date: 20150821
  Serious: Yes (Hospitalization, Other)
  Sender: FDA-Public Use
  Company Number: US-BAUSCH-BL-2015-011156

PATIENT
  Age: 13 Year
  Sex: Female

DRUGS (5)
  1. DEXAMETHASONE. [Suspect]
     Active Substance: DEXAMETHASONE
     Indication: ACUTE LYMPHOCYTIC LEUKAEMIA
     Route: 065
  2. CHLORPROMAZINE [Concomitant]
     Active Substance: CHLORPROMAZINE
     Indication: INSOMNIA
  3. CHLORPROMAZINE [Concomitant]
     Active Substance: CHLORPROMAZINE
     Indication: NERVOUSNESS
     Route: 065
  4. DEXAMETHASONE. [Suspect]
     Active Substance: DEXAMETHASONE
  5. PREDNISONE. [Suspect]
     Active Substance: PREDNISONE
     Indication: ACUTE LYMPHOCYTIC LEUKAEMIA
     Route: 065

REACTIONS (16)
  - Ecchymosis [None]
  - Muscular weakness [None]
  - Alopecia [None]
  - Hypoaesthesia [None]
  - Depressed mood [None]
  - Gastrointestinal disorder [None]
  - Pain in extremity [None]
  - Panic attack [Recovering/Resolving]
  - Balance disorder [None]
  - Confusional state [None]
  - Anxiety [None]
  - Mental disorder [None]
  - Diarrhoea [None]
  - Muscle spasms [None]
  - Somnolence [None]
  - Weight decreased [None]
